FAERS Safety Report 16992226 (Version 1)
Quarter: 2019Q4

REPORT INFORMATION
  Report Type: Spontaneous
  Country: US (occurrence: US)
  Receive Date: 20190923
  Receipt Date: 20190923
  Transmission Date: 20200122
  Serious: No
  Sender: FDA-Public Use
  Company Number: None

PATIENT
  Age: 67 Year
  Sex: Male

DRUGS (1)
  1. TREMFYA [Suspect]
     Active Substance: GUSELKUMAB
     Indication: PSORIASIS
     Route: 058
     Dates: start: 201908

REACTIONS (5)
  - Arthralgia [None]
  - Back pain [None]
  - Pyrexia [None]
  - Chills [None]
  - Malaise [None]

NARRATIVE: CASE EVENT DATE: 20190902
